FAERS Safety Report 9994797 (Version 1)
Quarter: 2014Q1

REPORT INFORMATION
  Report Type: Spontaneous
  Country: DE (occurrence: DE)
  Receive Date: 20140311
  Receipt Date: 20140311
  Transmission Date: 20141002
  Serious: Yes (Other)
  Sender: FDA-Public Use
  Company Number: PHHY2014DE026544

PATIENT
  Age: 18 Year
  Sex: Male

DRUGS (7)
  1. CICLOSPORIN [Suspect]
     Indication: FACTOR VIII INHIBITION
  2. DEXAMETHASONE [Suspect]
     Indication: FACTOR VIII INHIBITION
  3. RITUXIMAB [Suspect]
     Indication: FACTOR VIII INHIBITION
  4. CAMPATH-1H [Suspect]
     Indication: FACTOR VIII INHIBITION
  5. CELLCEPT [Suspect]
     Indication: FACTOR VIII INHIBITION
  6. IMMUNOGLOBULIN [Suspect]
     Indication: FACTOR VIII INHIBITION
  7. FVIII [Concomitant]
     Indication: FACTOR VIII INHIBITION

REACTIONS (7)
  - Obesity [Unknown]
  - Condition aggravated [Unknown]
  - Psychotic disorder [Unknown]
  - Sepsis [Unknown]
  - Paronychia [Unknown]
  - Skin infection [Unknown]
  - Drug ineffective [Unknown]
